FAERS Safety Report 8079056-3 (Version None)
Quarter: 2012Q1

REPORT INFORMATION
  Report Type: 
  Country: None (occurrence: None)
  Receive Date: 20120124
  Receipt Date: 20120109
  Transmission Date: 20120608
  Serious: Yes (Death, Hospitalization)
  Sender: FDA-Public Use
  Company Number: DSA_80512_2004

PATIENT
  Age: 39 Year
  Sex: Female

DRUGS (7)
  1. AMPHETAMINE AND DEXTROAMPHETAMINE [Concomitant]
  2. SEROQUEL [Concomitant]
  3. FLEXERIL [Concomitant]
  4. VALIUM [Concomitant]
  5. XYREM [Suspect]
     Indication: PRODUCT USED FOR UNKNOWN INDICATION
     Dosage: 4.5 GM (2.25 GM, 2 IN 1 D), ORAL
     Route: 048
     Dates: end: 20031230
  6. UNSPECIFIED DRUGS, MEDICAMENTS, AND BIOLOGICAL SUBSTANCES [Suspect]
     Indication: PRODUCT USED FOR UNKNOWN INDICATION
     Dates: end: 20031230
  7. METHADONE HCL [Concomitant]

REACTIONS (4)
  - CARDIAC ARREST [None]
  - UNRESPONSIVE TO STIMULI [None]
  - BRAIN INJURY [None]
  - ACCIDENTAL POISONING [None]
